FAERS Safety Report 25028016 (Version 1)
Quarter: 2025Q1

REPORT INFORMATION
  Report Type: Spontaneous
  Country: US (occurrence: US)
  Receive Date: 20250301
  Receipt Date: 20250301
  Transmission Date: 20250409
  Serious: No
  Sender: SANOFI AVENTIS
  Company Number: US-SA-2025SA058997

PATIENT
  Sex: Male

DRUGS (6)
  1. DUPIXENT [Suspect]
     Active Substance: DUPILUMAB
     Indication: Dermatitis atopic
  2. MINERALS\VITAMINS [Concomitant]
     Active Substance: MINERALS\VITAMINS
  3. DOCUSATE SODIUM [Concomitant]
     Active Substance: DOCUSATE SODIUM
  4. FERROUS SULFATE [Concomitant]
     Active Substance: FERROUS SULFATE
  5. GUAIFENESIN [Concomitant]
     Active Substance: GUAIFENESIN
  6. VITAMIN D [Concomitant]
     Active Substance: VITAMIN D NOS

REACTIONS (1)
  - Intentional product misuse [Unknown]
